FAERS Safety Report 5878821-8 (Version None)
Quarter: 2008Q3

REPORT INFORMATION
  Report Type: 
  Country: None (occurrence: None)
  Receive Date: 20080910
  Receipt Date: 20080826
  Transmission Date: 20090109
  Serious: Yes (Hospitalization)
  Sender: FDA-Public Use
  Company Number: 2008BI016845

PATIENT
  Age: 44 Year
  Sex: Female

DRUGS (1)
  1. TYSABRI [Suspect]
     Indication: MULTIPLE SCLEROSIS
     Dosage: 300 MG; QM; IV
     Route: 042
     Dates: start: 20080125

REACTIONS (10)
  - APPENDICEAL ABSCESS [None]
  - APPENDICITIS PERFORATED [None]
  - CERVICITIS [None]
  - ENDOMETRIAL HYPERPLASIA [None]
  - LEIOMYOMA [None]
  - OVARIAN CYST [None]
  - OVARIAN NEOPLASM [None]
  - SALPINGITIS [None]
  - TUBO-OVARIAN ABSCESS [None]
  - UTERINE POLYP [None]
